FAERS Safety Report 18427426 (Version 1)
Quarter: 2020Q4

REPORT INFORMATION
  Report Type: Spontaneous
  Country: AU (occurrence: AU)
  Receive Date: 20201026
  Receipt Date: 20201026
  Transmission Date: 20210114
  Serious: Yes (Other)
  Sender: FDA-Public Use
  Company Number: AU-SHIRE-AU202033923

PATIENT

DRUGS (4)
  1. VYVANSE [Suspect]
     Active Substance: LISDEXAMFETAMINE DIMESYLATE
     Indication: ANXIETY
  2. LOVAN [Suspect]
     Active Substance: FLUOXETINE HYDROCHLORIDE
     Indication: ATTENTION DEFICIT HYPERACTIVITY DISORDER
     Dosage: 10 MILLIGRAM
     Route: 065
  3. VYVANSE [Suspect]
     Active Substance: LISDEXAMFETAMINE DIMESYLATE
     Indication: ATTENTION DEFICIT HYPERACTIVITY DISORDER
     Dosage: 30 MILLIGRAM
     Route: 065
  4. LOVAN [Suspect]
     Active Substance: FLUOXETINE HYDROCHLORIDE
     Indication: ANXIETY

REACTIONS (8)
  - Onychophagia [Unknown]
  - Trichotillomania [Unknown]
  - Haemorrhage [Unknown]
  - Intentional self-injury [Unknown]
  - Stress [Unknown]
  - Scab [Unknown]
  - Pain in extremity [Unknown]
  - Limb injury [Unknown]
